FAERS Safety Report 4634765-0 (Version None)
Quarter: 2005Q2

REPORT INFORMATION
  Report Type: 
  Country: None (occurrence: None)
  Receive Date: 20050412
  Receipt Date: 20050412
  Transmission Date: 20051028
  Serious: Yes (Hospitalization)
  Sender: FDA-Public Use
  Company Number: None

PATIENT
  Age: 63 Year
  Sex: Male
  Weight: 81.6 kg

DRUGS (6)
  1. CYCLOPHOSPHAMIDE [Suspect]
     Indication: NON-HODGKIN'S LYMPHOMA
     Dosage: 3492   X 2 DAYS   INTRAVENOU
     Route: 042
     Dates: start: 20040131, end: 20040201
  2. TBI [Suspect]
     Indication: STEM CELL TRANSPLANT
     Dosage: 150CGY   BID
     Dates: start: 20040203, end: 20040205
  3. MDR-1 CDNA GENE THERAPY [Concomitant]
  4. ACYCLOVIR [Concomitant]
  5. VASOTEC [Concomitant]
  6. PROTONIX [Concomitant]

REACTIONS (10)
  - ALPHA HAEMOLYTIC STREPTOCOCCAL INFECTION [None]
  - CANDIDIASIS [None]
  - DIFFUSE ALVEOLAR DAMAGE [None]
  - DYSPNOEA [None]
  - INFECTION [None]
  - KLEBSIELLA INFECTION [None]
  - LUNG INFECTION [None]
  - MYOCARDIAL INFARCTION [None]
  - STAPHYLOCOCCAL INFECTION [None]
  - THERAPY NON-RESPONDER [None]
